FAERS Safety Report 14574226 (Version 16)
Quarter: 2020Q1

REPORT INFORMATION
  Report Type: Report from Study
  Country: US (occurrence: US)
  Receive Date: 20180226
  Receipt Date: 20200210
  Transmission Date: 20200409
  Serious: Yes (Death, Other)
  Sender: FDA-Public Use
  Company Number: US-ACTELION-A-US2018-168158

PATIENT
  Age: 42 Year
  Sex: Female
  Weight: 89.8 kg

DRUGS (10)
  1. LASIX [Concomitant]
     Active Substance: FUROSEMIDE
  2. OPSUMIT [Suspect]
     Active Substance: MACITENTAN
     Indication: PULMONARY ARTERIAL HYPERTENSION
     Dosage: 10 MG, QD
     Route: 048
     Dates: start: 20180123
  3. OXYCODONE [Concomitant]
     Active Substance: OXYCODONE
  4. MORPHINE [Concomitant]
     Active Substance: MORPHINE
  5. REMODULIN [Suspect]
     Active Substance: TREPROSTINIL
     Indication: PULMONARY ARTERIAL HYPERTENSION
     Dosage: 66 NG/KG, PER MIN
     Route: 065
     Dates: start: 20160408
  6. ADCIRCA [Concomitant]
     Active Substance: TADALAFIL
  7. TYLENOL [Suspect]
     Active Substance: ACETAMINOPHEN
     Indication: PAIN
     Dosage: UNK
     Route: 048
     Dates: end: 20180824
  8. ORENITRAM [Concomitant]
     Active Substance: TREPROSTINIL
     Dosage: 12.5 MG, TID
  9. TRAMADOL. [Concomitant]
     Active Substance: TRAMADOL
     Dosage: UNK
  10. NORCO [Concomitant]
     Active Substance: ACETAMINOPHEN\HYDROCODONE BITARTRATE

REACTIONS (34)
  - Aspartate aminotransferase increased [Recovered/Resolved]
  - Gastroenteritis viral [Not Recovered/Not Resolved]
  - Contusion [Recovering/Resolving]
  - Fluid retention [Unknown]
  - Pain in extremity [Not Recovered/Not Resolved]
  - Syncope [Unknown]
  - Malaise [Unknown]
  - Paraesthesia [Not Recovered/Not Resolved]
  - Diarrhoea [Unknown]
  - Myalgia [Unknown]
  - Abdominal pain upper [Not Recovered/Not Resolved]
  - Arthralgia [Unknown]
  - Pain [Unknown]
  - Ocular icterus [Unknown]
  - Rhinorrhoea [Unknown]
  - Liver function test abnormal [Recovered/Resolved]
  - Headache [Unknown]
  - Peripheral swelling [Unknown]
  - Decreased appetite [Unknown]
  - Flushing [Recovering/Resolving]
  - Insomnia [Unknown]
  - Respiratory tract infection [Unknown]
  - Death [Fatal]
  - Alanine aminotransferase increased [Recovered/Resolved]
  - Oropharyngeal pain [Unknown]
  - Nasopharyngitis [Unknown]
  - Nausea [Not Recovered/Not Resolved]
  - Pain in jaw [Not Recovered/Not Resolved]
  - Swelling face [Recovered/Resolved]
  - Influenza [Unknown]
  - Dyspnoea exertional [Unknown]
  - Oedema [Unknown]
  - Chest pain [Unknown]
  - Lymphadenopathy [Unknown]

NARRATIVE: CASE EVENT DATE: 201808
